FAERS Safety Report 4588887-3 (Version None)
Quarter: 2005Q1

REPORT INFORMATION
  Report Type: 
  Country: None (occurrence: None)
  Receive Date: 20050216
  Receipt Date: 20050128
  Transmission Date: 20050727
  Serious: No
  Sender: FDA-Public Use
  Company Number: REM_00081_2005

PATIENT
  Age: 40 Year
  Sex: Male
  Weight: 64 kg

DRUGS (10)
  1. REMODULIN [Suspect]
     Indication: PULMONARY HYPERTENSION
     Dosage: 45 NG/KG/MIN CONTINUOUS SC
     Route: 058
     Dates: start: 20041216, end: 20041229
  2. VIDEX [Concomitant]
  3. DAPSONE [Concomitant]
  4. AMBIEN [Concomitant]
  5. LORTAB [Concomitant]
  6. XOPENEX [Concomitant]
  7. EMTRIVA [Concomitant]
  8. KALETRA [Concomitant]
  9. COUMADIN [Concomitant]
  10. PHENERGAN [Concomitant]

REACTIONS (3)
  - INFUSION SITE PAIN [None]
  - JOINT SWELLING [None]
  - SCROTAL SWELLING [None]
